FAERS Safety Report 16160635 (Version 1)
Quarter: 2019Q2

REPORT INFORMATION
  Report Type: Report from Study
  Country: FR (occurrence: FR)
  Receive Date: 20190405
  Receipt Date: 20190405
  Transmission Date: 20190711
  Serious: Yes (Other)
  Sender: FDA-Public Use
  Company Number: FR-ROCHE-2004711

PATIENT
  Age: 75 Year
  Sex: Female
  Weight: 68 kg

DRUGS (7)
  1. VENETOCLAX. [Suspect]
     Active Substance: VENETOCLAX
     Indication: NON-HODGKIN^S LYMPHOMA
     Dosage: DATE OF MOST RECENT DOSE 400 MG PRIOR TO AE ONSET 09/AUG/2015?200 TO 800 MG TABLETS ADMINISTERED ORA
     Route: 048
     Dates: start: 20150310
  2. PREDNISONE. [Suspect]
     Active Substance: PREDNISONE
     Indication: NON-HODGKIN^S LYMPHOMA
     Dosage: DATE OF MOST RECENT DOSE (100) OF PREDNISONE PRIOR TO AE ONSET: 23/JUN/2015
     Route: 048
     Dates: start: 20150306
  3. ZELITREX [Concomitant]
     Active Substance: VALACYCLOVIR HYDROCHLORIDE
     Indication: HERPES ZOSTER
     Route: 065
     Dates: start: 20150810, end: 20170522
  4. DOXORUBICIN [Suspect]
     Active Substance: DOXORUBICIN
     Indication: NON-HODGKIN^S LYMPHOMA
     Dosage: DATE OF MOST RECENT DOSE 89.6 PRIOR TO AE ONSET: 19/JUN/2015 AT 16.30
     Route: 042
     Dates: start: 20150307
  5. CYCLOPHOSPHAMIDE. [Suspect]
     Active Substance: CYCLOPHOSPHAMIDE
     Indication: NON-HODGKIN^S LYMPHOMA
     Dosage: DATE OF MOST RECENT DOSE (1342) OF CYCLOPHOSPHAMIDE PRIOR TO AE ONSET: 19/JUN/2015 AT 15:15
     Route: 042
     Dates: start: 20150307
  6. OBINUTUZUMAB. [Suspect]
     Active Substance: OBINUTUZUMAB
     Indication: NON-HODGKIN^S LYMPHOMA
     Dosage: DATE OF MOST RECENT DOSE (1000) OF OBINUTUZUMAB PRIOR TO AE ONSET: 31/JUL/2015 AT 11.45
     Route: 042
     Dates: start: 20150306
  7. VINCRISTINE [Suspect]
     Active Substance: VINCRISTINE
     Indication: NON-HODGKIN^S LYMPHOMA
     Dosage: DATE OF MOST RECENT DOSE (2.00) OF VINCRISTINE PRIOR TO AE ONSET: 19/JUN/2015 AT 17:15
     Route: 042
     Dates: start: 20150307

REACTIONS (1)
  - Squamous cell carcinoma [Recovered/Resolved]

NARRATIVE: CASE EVENT DATE: 20170515
